FAERS Safety Report 19674892 (Version 1)
Quarter: 2021Q3

REPORT INFORMATION
  Report Type: Spontaneous
  Country: US (occurrence: US)
  Receive Date: 20210809
  Receipt Date: 20210809
  Transmission Date: 20211014
  Serious: No
  Sender: FDA-Public Use
  Company Number: None

PATIENT
  Age: 63 Year
  Sex: Female
  Weight: 72.9 kg

DRUGS (8)
  1. MOBIC [Concomitant]
     Active Substance: MELOXICAM
  2. MULTI VITAMIN [Concomitant]
     Active Substance: VITAMINS
  3. FISH OIL [Concomitant]
     Active Substance: FISH OIL
  4. ASWAGANDA [Concomitant]
  5. FIBER SUPPLEMENT [Concomitant]
     Active Substance: DIETARY SUPPLEMENT
  6. MACROBID [Concomitant]
     Active Substance: NITROFURANTOIN\NITROFURANTOIN MONOHYDRATE
  7. REGEN?COV [Suspect]
     Active Substance: CASIRIVIMAB\IMDEVIMAB
     Indication: COVID-19
     Dates: start: 20210720, end: 20210720
  8. GOLI APPLE CIDER VINEGAR [Concomitant]

REACTIONS (5)
  - Feeling cold [None]
  - Infusion related reaction [None]
  - Alopecia [None]
  - Hyperaesthesia teeth [None]
  - Vision blurred [None]

NARRATIVE: CASE EVENT DATE: 20210720
